FAERS Safety Report 13441385 (Version 1)
Quarter: 2017Q2

REPORT INFORMATION
  Report Type: Spontaneous
  Country: DK (occurrence: DK)
  Receive Date: 20170414
  Receipt Date: 20170414
  Transmission Date: 20170830
  Serious: Yes (Hospitalization)
  Sender: FDA-Public Use
  Company Number: DK-BRISTOL-MYERS SQUIBB COMPANY-BMS-2017-030126

PATIENT
  Age: 49 Year
  Sex: Female
  Weight: 48.5 kg

DRUGS (8)
  1. ORAMORPH [Concomitant]
     Active Substance: MORPHINE SULFATE
     Indication: DYSPNOEA
     Route: 065
     Dates: start: 20170309
  2. NEVANAC [Concomitant]
     Active Substance: NEPAFENAC
     Indication: CATARACT
     Route: 065
     Dates: start: 20170309
  3. OPDIVO [Suspect]
     Active Substance: NIVOLUMAB
     Indication: LUNG NEOPLASM MALIGNANT
     Dosage: 150 MG, UNK
     Route: 065
     Dates: start: 20170126
  4. BRICANYL [Concomitant]
     Active Substance: TERBUTALINE SULFATE
     Indication: DYSPNOEA
     Route: 065
     Dates: start: 20150901
  5. SANDOZ OMEPRAZOLE [Concomitant]
     Active Substance: OMEPRAZOLE
     Indication: GASTROOESOPHAGEAL REFLUX DISEASE
     Route: 065
     Dates: start: 20160418
  6. ESTROFEM [Concomitant]
     Active Substance: ESTRADIOL CYPIONATE
     Indication: HORMONE THERAPY
     Route: 065
     Dates: start: 20160418
  7. PREDNISOLON                        /00016201/ [Concomitant]
     Active Substance: PREDNISOLONE
     Indication: DYSPNOEA
     Route: 065
     Dates: start: 20170311
  8. TOILAX [Concomitant]
     Active Substance: BISACODYL
     Indication: CONSTIPATION
     Route: 065
     Dates: start: 20160910

REACTIONS (1)
  - Sinus tachycardia [Not Recovered/Not Resolved]

NARRATIVE: CASE EVENT DATE: 20170209
